FAERS Safety Report 8488830-0 (Version None)
Quarter: 2012Q3

REPORT INFORMATION
  Report Type: 
  Country: None (occurrence: None)
  Receive Date: 20120705
  Receipt Date: 20120628
  Transmission Date: 20120928
  Serious: Yes (Hospitalization)
  Sender: FDA-Public Use
  Company Number: US-UCBSA-058272

PATIENT
  Age: 24 Hour
  Sex: Female
  Weight: 1.65 kg

DRUGS (28)
  1. PREDNISONE [Concomitant]
     Indication: CROHN'S DISEASE
     Route: 064
     Dates: start: 20090513, end: 20091111
  2. LOMOTIL [Concomitant]
     Indication: CROHN'S DISEASE
     Route: 064
  3. QUESTRAN [Concomitant]
     Dosage: DAILY DOSE: 4 G
     Route: 064
  4. FOLIC ACID [Concomitant]
     Indication: VITAMIN SUPPLEMENTATION
  5. LOVENOX [Concomitant]
     Dosage: DAILY
     Route: 064
  6. MERCAPTOPURINE [Concomitant]
     Indication: CROHN'S DISEASE
     Route: 064
     Dates: start: 20100330, end: 20100422
  7. PHENERGAN HCL [Concomitant]
     Indication: NAUSEA
     Route: 064
  8. NUDEXTA [Concomitant]
     Route: 064
  9. MICRO-K [Concomitant]
     Dosage: 20MEQ
     Route: 064
  10. MERCAPTOPURINE [Concomitant]
     Route: 064
     Dates: start: 20100512
  11. BACLOFEN [Concomitant]
     Route: 064
  12. CYMBALTA [Concomitant]
     Dosage: 60 MG DAILY
     Route: 064
  13. CALCIUM CARBONATE [Concomitant]
     Route: 064
  14. IMMUNE GLOBULIN INTRAVENOUS (HUMAN) [Suspect]
     Indication: AMYOTROPHIC LATERAL SCLEROSIS
  15. PREDNISONE [Concomitant]
     Dosage: TAPER; 10MG DAILY
     Route: 064
     Dates: start: 20091118
  16. VITAMIN B-12 [Concomitant]
     Dosage: MONTHLY
     Route: 064
  17. ZOFRAN [Concomitant]
     Indication: NAUSEA
     Dosage: ODT; 4MG ONCE EVERY 6 HOURS
     Route: 064
  18. SINGULAIR [Concomitant]
     Dosage: 10 MG DAILY
     Route: 064
  19. VISTARIL [Concomitant]
     Indication: ANXIETY
     Dosage: 25MG ONCE EVERY 6 HOURS
     Route: 064
  20. CLONAZEPAM [Concomitant]
     Dosage: TID
     Route: 064
  21. VITAMIN AND MINERAL PRENATAL SUPPLEMENT W/ FOLIC ACID CAP [Concomitant]
     Route: 064
  22. ZOLOFT [Concomitant]
     Dosage: 200 MG DAILY
     Route: 064
  23. NEXIUM [Concomitant]
     Dosage: 40MG DAILY
     Route: 064
  24. ALBUTEROL [Concomitant]
     Dosage: Q6H; NEBULIZER
  25. CIMZIA [Suspect]
     Indication: CROHN'S DISEASE
     Route: 064
     Dates: start: 20100601, end: 20110105
  26. ALEVE [Concomitant]
     Route: 064
  27. TRIAMCINOLONE [Concomitant]
     Dosage: 0.1%
  28. SILVADINE [Concomitant]
     Dosage: 1%
     Route: 064

REACTIONS (3)
  - PREMATURE BABY [None]
  - FOETAL EXPOSURE DURING PREGNANCY [None]
  - LOW BIRTH WEIGHT BABY [None]
